FAERS Safety Report 7810797-6 (Version None)
Quarter: 2011Q4

REPORT INFORMATION
  Report Type: 
  Country: None (occurrence: None)
  Receive Date: 20111012
  Receipt Date: 20111012
  Transmission Date: 20120403
  Serious: No
  Sender: FDA-Public Use
  Company Number: None

PATIENT
  Age: 67 Year
  Sex: Female
  Weight: 91.6266 kg

DRUGS (2)
  1. FERAHEME [Suspect]
     Indication: IRON DEFICIENCY ANAEMIA
     Dosage: 510MG/ONCE/IVP
     Route: 042
     Dates: start: 20111010
  2. NS [Concomitant]

REACTIONS (7)
  - MALAISE [None]
  - BLOOD PRESSURE INCREASED [None]
  - NAUSEA [None]
  - VOMITING [None]
  - BACK PAIN [None]
  - INFUSION RELATED REACTION [None]
  - CHEST DISCOMFORT [None]
